FAERS Safety Report 13330337 (Version 1)
Quarter: 2017Q1

REPORT INFORMATION
  Report Type: Report from Study
  Country: US (occurrence: US)
  Receive Date: 20170314
  Receipt Date: 20170314
  Transmission Date: 20170428
  Serious: Yes (Other)
  Sender: FDA-Public Use
  Company Number: US-BAXTER-2017BAX011570

PATIENT
  Age: 11 Day
  Sex: Male
  Weight: .62 kg

DRUGS (3)
  1. GENTAMICIN SULFATE IN 0.9% SODIUM CHLORIDE INJECTION [Suspect]
     Active Substance: GENTAMICIN SULFATE
     Indication: PRODUCT USED FOR UNKNOWN INDICATION
     Dosage: 5 DOSES
     Route: 065
     Dates: start: 2010, end: 2010
  2. VANCOMYCIN INJECTION, USP [Suspect]
     Active Substance: VANCOMYCIN
     Dosage: 8.25 MG
     Route: 065
     Dates: start: 20100110, end: 20100116
  3. VANCOMYCIN INJECTION, USP [Suspect]
     Active Substance: VANCOMYCIN
     Indication: PRODUCT USED FOR UNKNOWN INDICATION
     Dosage: 12.3 MG
     Route: 065
     Dates: start: 20100106, end: 20100110

REACTIONS (1)
  - Acute kidney injury [Unknown]

NARRATIVE: CASE EVENT DATE: 2010
